FAERS Safety Report 19100417 (Version 2)
Quarter: 2021Q2

REPORT INFORMATION
  Report Type: Report from Study
  Country: US (occurrence: US)
  Receive Date: 20210407
  Receipt Date: 20210420
  Transmission Date: 20210717
  Serious: Yes (Hospitalization)
  Sender: FDA-Public Use
  Company Number: US-ROCHE-2609714

PATIENT
  Age: 72 Year
  Sex: Male
  Weight: 92.98 kg

DRUGS (18)
  1. XL184 [Suspect]
     Active Substance: CABOZANTINIB
     Indication: HORMONE-REFRACTORY PROSTATE CANCER
     Dosage: ON15/MAY/2020, HE RECEIVED MOST RECENT DOSE OF CABOZATINIB PRIOR TO SAE ONSET
     Route: 048
     Dates: start: 20200224
  2. LISINOPRIL. [Concomitant]
     Active Substance: LISINOPRIL
  3. HALOBETASOL [Concomitant]
     Active Substance: HALOBETASOL PROPIONATE
  4. TRAVATAN Z [Concomitant]
     Active Substance: TRAVOPROST
  5. CARBIDOPA;LEVODOPA [Concomitant]
     Active Substance: CARBIDOPA\LEVODOPA
  6. IBUPROFEN. [Concomitant]
     Active Substance: IBUPROFEN
  7. METOLAZONE. [Concomitant]
     Active Substance: METOLAZONE
  8. ATEZOLIZUMAB. [Suspect]
     Active Substance: ATEZOLIZUMAB
     Indication: HORMONE-REFRACTORY PROSTATE CANCER
     Dosage: ON 27/APR/2020, HE RECEIVED MOST RECENT DOSE OGF ATEZOLIZUMAB PRIOR TO SAE ONSET.
     Route: 042
     Dates: start: 20200224
  9. LANTUS [Concomitant]
     Active Substance: INSULIN GLARGINE
  10. ROPINIROLE HYDROCHLORIDE. [Concomitant]
     Active Substance: ROPINIROLE HYDROCHLORIDE
  11. SERTRALINE [Concomitant]
     Active Substance: SERTRALINE HYDROCHLORIDE
  12. METFORMIN [Concomitant]
     Active Substance: METFORMIN HYDROCHLORIDE
  13. OMEPRAZOLE. [Concomitant]
     Active Substance: OMEPRAZOLE
  14. PIOGLITAZONE. [Concomitant]
     Active Substance: PIOGLITAZONE
  15. FUROSEMIDE. [Concomitant]
     Active Substance: FUROSEMIDE
  16. AZELASTINE. [Concomitant]
     Active Substance: AZELASTINE HYDROCHLORIDE
  17. VITAMIN B12 [Concomitant]
     Active Substance: CYANOCOBALAMIN
  18. CALCIUM CARBONATE;CALCIUM CITRATE;COLECALCIFEROL [Concomitant]

REACTIONS (2)
  - Pancreatitis [Recovered/Resolved]
  - Failure to thrive [Recovered/Resolved]

NARRATIVE: CASE EVENT DATE: 20200515
